FAERS Safety Report 9206602 (Version 1)
Quarter: 2013Q2

REPORT INFORMATION
  Report Type: Spontaneous
  Country: FR (occurrence: FR)
  Receive Date: 20130403
  Receipt Date: 20130403
  Transmission Date: 20140414
  Serious: Yes (Hospitalization, Other)
  Sender: FDA-Public Use
  Company Number: FR-JNJFOC-20130400804

PATIENT
  Age: 77 Year
  Sex: Female

DRUGS (6)
  1. XARELTO [Suspect]
     Indication: THROMBOSIS PROPHYLAXIS
     Route: 048
     Dates: start: 20121121, end: 20121126
  2. SKENAN [Concomitant]
     Route: 048
     Dates: start: 20121123
  3. FORLAX [Concomitant]
     Route: 048
     Dates: start: 20121124
  4. FLECAINE [Concomitant]
     Route: 048
  5. IXPRIM [Concomitant]
     Route: 048
     Dates: start: 20121122
  6. INEXIUM [Concomitant]
     Route: 048
     Dates: start: 20121122

REACTIONS (3)
  - Pulmonary embolism [Recovered/Resolved]
  - Deep vein thrombosis [Recovered/Resolved]
  - Drug ineffective [Recovered/Resolved]
